FAERS Safety Report 5642731-1 (Version None)
Quarter: 2008Q1

REPORT INFORMATION
  Report Type: 
  Country: None (occurrence: None)
  Receive Date: 20080227
  Receipt Date: 20080227
  Transmission Date: 20080703
  Serious: Yes (Hospitalization)
  Sender: FDA-Public Use
  Company Number: None

PATIENT
  Sex: Female
  Weight: 96.1626 kg

DRUGS (13)
  1. COUMADIN [Suspect]
     Indication: CARDIAC VALVE DISEASE
     Dosage: PO, QD  (THERAPY DATES:  PRIOR TO ADMISSION)
     Route: 048
  2. ADVAIR DISKUS 100/50 [Concomitant]
  3. LOVASTATIN [Concomitant]
  4. POTASSIUM CHLORIDE [Concomitant]
  5. ASPIRIN [Concomitant]
  6. PRILOSEC [Concomitant]
  7. LASIX [Concomitant]
  8. TOPROL-XL [Concomitant]
  9. DIGOXIN [Concomitant]
  10. ENALAPRIL MALEATE [Concomitant]
  11. PROVENTIL [Concomitant]
  12. ATROVENT [Concomitant]
  13. ALLOPURINOL [Concomitant]

REACTIONS (7)
  - COAGULOPATHY [None]
  - CONTUSION [None]
  - EPISTAXIS [None]
  - FAECES DISCOLOURED [None]
  - GASTROINTESTINAL HAEMORRHAGE [None]
  - INTERNATIONAL NORMALISED RATIO INCREASED [None]
  - PROTHROMBIN TIME PROLONGED [None]
